FAERS Safety Report 10035234 (Version 1)
Quarter: 2014Q1

REPORT INFORMATION
  Report Type: Spontaneous
  Country: US (occurrence: None)
  Receive Date: 20140306
  Receipt Date: 20140306
  Transmission Date: 20141002
  Serious: Yes (Hospitalization)
  Sender: FDA-Public Use
  Company Number: 163-21880-13062694

PATIENT
  Age: 65 Year
  Sex: Female

DRUGS (19)
  1. REVLIMID [Suspect]
     Indication: PLASMA CELL MYELOMA
     Route: 048
     Dates: start: 201105
  2. LEVOFLOXACIN (LEVOFLOXACIN) [Concomitant]
  3. LORAZEPAM (LORAZEPAM) [Concomitant]
  4. TAMSULOSIN (TAMSULOSIN) [Concomitant]
  5. DOC-Q-LACE (DOCUSATE SODIUM) [Concomitant]
  6. FOLIC ACID (FOLIC ACID) [Concomitant]
  7. BISACODYL (BISACODYL) [Concomitant]
  8. CARVEDILOL (CARVEDILOL) [Concomitant]
  9. SPIRONOLACTON (SPIRONOLACTONE) [Concomitant]
  10. FENTANYL (FENTANYL) [Concomitant]
  11. METHOCARBAMOL (METHOCARBAMOL) [Concomitant]
  12. NITROFURANTOIN (NITROFURANTOIN) [Concomitant]
  13. VESICARE (SOLIFENACIN SUCCINATE) [Concomitant]
  14. DIPHENOXYLATE WITH ATROPINE (LOMOTIL) [Concomitant]
  15. WARFARIN (WARFARIN) [Concomitant]
  16. FLUCONAZOLE (FLUCONAZOLE) [Concomitant]
  17. ZOLPIDEM (ZOLPIDEM) [Concomitant]
  18. DEXAMETHASONE (DEXAMETHASONE) [Concomitant]
  19. HYDROCODONE/APAP (VICODIN) [Concomitant]

REACTIONS (1)
  - Diarrhoea [None]
